FAERS Safety Report 9678312 (Version 1)
Quarter: 2013Q4

REPORT INFORMATION
  Report Type: Spontaneous
  Country: US (occurrence: US)
  Receive Date: 20131108
  Receipt Date: 20131108
  Transmission Date: 20140711
  Serious: Yes (Other)
  Sender: FDA-Public Use
  Company Number: US-PFIZER INC-2013314118

PATIENT
  Age: 46 Year
  Sex: Male
  Weight: 72.56 kg

DRUGS (5)
  1. REVATIO [Suspect]
     Indication: RAYNAUD^S PHENOMENON
     Dosage: 20 MG, 2X/DAY
     Route: 048
     Dates: start: 201212, end: 201305
  2. REVATIO [Suspect]
     Indication: ERECTILE DYSFUNCTION
  3. METHOTREXATE [Concomitant]
     Dosage: UNK
     Dates: start: 2013
  4. NIFEDICAL [Concomitant]
     Dosage: UNK
     Dates: end: 2013
  5. AMLODIPINE [Concomitant]
     Dosage: UNK
     Dates: start: 2013

REACTIONS (3)
  - Rheumatoid arthritis [Unknown]
  - Pain [Unknown]
  - Off label use [Unknown]
